FAERS Safety Report 14199773 (Version 2)
Quarter: 2019Q1

REPORT INFORMATION
  Report Type: Spontaneous
  Country: US (occurrence: US)
  Receive Date: 20171117
  Receipt Date: 20190322
  Transmission Date: 20190417
  Serious: Yes (Hospitalization)
  Sender: FDA-Public Use
  Company Number: US-BAUSCH-BL-2017-024293

PATIENT
  Age: 50 Year
  Sex: Female

DRUGS (3)
  1. XIFAXAN [Suspect]
     Active Substance: RIFAXIMIN
     Indication: PRODUCT USE IN UNAPPROVED INDICATION
  2. XIFAXAN [Suspect]
     Active Substance: RIFAXIMIN
     Indication: DIARRHOEA
     Route: 048
     Dates: start: 201901, end: 2019
  3. XIFAXAN [Suspect]
     Active Substance: RIFAXIMIN
     Indication: GASTROINTESTINAL BACTERIAL INFECTION
     Route: 048
     Dates: start: 2016

REACTIONS (7)
  - Gingival swelling [Unknown]
  - Product use in unapproved indication [Unknown]
  - Haematochezia [Unknown]
  - Swelling face [Unknown]
  - Intentional product use issue [Unknown]
  - Therapy cessation [Unknown]
  - Product supply issue [Unknown]

NARRATIVE: CASE EVENT DATE: 2016
